FAERS Safety Report 7935231-7 (Version None)
Quarter: 2011Q4

REPORT INFORMATION
  Report Type: 
  Country: None (occurrence: None)
  Receive Date: 20111122
  Receipt Date: 20111116
  Transmission Date: 20120403
  Serious: Yes (Hospitalization)
  Sender: FDA-Public Use
  Company Number: NL-AMGEN-NLDSP2011060882

PATIENT
  Age: 64 Year
  Sex: Female
  Weight: 98 kg

DRUGS (10)
  1. NEUPOGEN [Suspect]
     Indication: DIFFUSE LARGE B-CELL LYMPHOMA
     Dosage: 6 MG, Q2WK
     Route: 058
     Dates: start: 20110729
  2. VINCRISTINE [Suspect]
     Indication: DIFFUSE LARGE B-CELL LYMPHOMA
     Dosage: 2 MG, Q2WK
     Route: 042
     Dates: start: 20110728
  3. RITUXIMAB [Suspect]
     Indication: DIFFUSE LARGE B-CELL LYMPHOMA
     Dosage: 750 MG, Q2WK
     Route: 042
     Dates: start: 20110728
  4. PREDNISONE TAB [Suspect]
     Indication: DIFFUSE LARGE B-CELL LYMPHOMA
     Dosage: 100 MG, UNK
     Route: 048
     Dates: start: 20110723
  5. DOXORUBICIN HCL [Suspect]
     Indication: DIFFUSE LARGE B-CELL LYMPHOMA
     Dosage: 106 MG, Q2WK
     Route: 042
     Dates: start: 20110728
  6. ALLOPURINOL [Concomitant]
     Indication: PROPHYLAXIS
     Dosage: 300 MG, UNK
     Route: 048
     Dates: start: 20110722
  7. CYCLOPHOSPHAMIDE [Suspect]
     Dosage: 1620 MG, UNK
     Route: 042
     Dates: start: 20111003
  8. DOXORUBICIN HCL [Suspect]
     Dosage: 106 MG, UNK
     Route: 042
     Dates: start: 20111003
  9. VINCRISTINE [Suspect]
     Dosage: 2 MG, UNK
     Route: 042
     Dates: start: 20111003
  10. CYCLOPHOSPHAMIDE [Suspect]
     Indication: DIFFUSE LARGE B-CELL LYMPHOMA
     Dosage: 1620 MG, Q2WK
     Route: 042
     Dates: start: 20110728

REACTIONS (4)
  - DELIRIUM [None]
  - NEUTROPENIA [None]
  - MALAISE [None]
  - MENTAL DISORDER [None]
